FAERS Safety Report 6821811-9 (Version None)
Quarter: 2010Q2

REPORT INFORMATION
  Report Type: 
  Country: None (occurrence: None)
  Receive Date: 20100316
  Receipt Date: 20100316
  Transmission Date: 20101027
  Serious: No
  Sender: FDA-Public Use
  Company Number: None

PATIENT
  Sex: Female
  Weight: 84.369 kg

DRUGS (4)
  1. RADIOACTIVE IODINE [Suspect]
     Indication: SCAN MYOCARDIAL PERFUSION
     Dosage: 12.54 1 TIME ORAL PILL
     Route: 048
     Dates: start: 19900301
  2. RADIOACTIVE IODINE [Suspect]
     Indication: THYROIDECTOMY
     Dosage: 12.54 1 TIME ORAL PILL
     Route: 048
     Dates: start: 19900301
  3. RADIOACTIVE IODINE [Suspect]
     Indication: SCAN MYOCARDIAL PERFUSION
     Dosage: 12.54 1 TIME ORAL PILL
     Route: 048
     Dates: start: 20090901
  4. RADIOACTIVE IODINE [Suspect]
     Indication: THYROIDECTOMY
     Dosage: 12.54 1 TIME ORAL PILL
     Route: 048
     Dates: start: 20090901

REACTIONS (2)
  - IATROGENIC INJURY [None]
  - INFLUENZA [None]
